FAERS Safety Report 9397577 (Version 1)
Quarter: 2013Q3

REPORT INFORMATION
  Report Type: Report from Study
  Country: JP (occurrence: JP)
  Receive Date: 20130712
  Receipt Date: 20130712
  Transmission Date: 20140515
  Serious: Yes (Death)
  Sender: FDA-Public Use
  Company Number: JP-SANOFI-AVENTIS-2013SA068404

PATIENT
  Age: 72 Year
  Sex: Male

DRUGS (3)
  1. TAXOTERE [Suspect]
     Indication: PROSTATE CANCER
     Dosage: 10 COURSES;
     Route: 042
     Dates: start: 20060711, end: 20070515
  2. TAXOTERE [Suspect]
     Indication: PROSTATE CANCER
     Route: 042
     Dates: start: 20070525
  3. ESTRACYT [Concomitant]
     Dosage: 2 CAPX 5 DAY
     Route: 048
     Dates: start: 20060711, end: 20070519

REACTIONS (3)
  - Pneumonia [Fatal]
  - Neutropenia [Fatal]
  - Respiratory failure [Fatal]
